FAERS Safety Report 4345019-4 (Version None)
Quarter: 2004Q2

REPORT INFORMATION
  Report Type: 
  Country: None (occurrence: None)
  Receive Date: 20040420
  Receipt Date: 20040405
  Transmission Date: 20050107
  Serious: Yes (Other)
  Sender: FDA-Public Use
  Company Number: 235958

PATIENT
  Sex: Female
  Weight: 3.8 kg

DRUGS (8)
  1. HUMALOG PEN [Suspect]
     Indication: DIABETES MELLITUS
     Dosage: 32 IU, QD, INTRAUTERINE
     Route: 064
     Dates: start: 20021218
  2. PROTAPHANE PENFILL (INSULIN HUMAN) [Concomitant]
  3. FENTANYL [Concomitant]
  4. MORPHINE [Concomitant]
  5. EPHEDRIN (EPHEDRINE HYDROCHLORIDE) [Concomitant]
  6. PETIDIN (PETHIDINE HYDROCHLORIDE) [Concomitant]
  7. SODIUM CHLORIDE INJ [Concomitant]
  8. BLOOD TRANSFUSION, AUXILIARY PRODUCTS [Concomitant]

REACTIONS (5)
  - ASPHYXIA [None]
  - CAESAREAN SECTION [None]
  - FOETAL DISORDER [None]
  - HYPOGLYCAEMIA NEONATAL [None]
  - MATERNAL DRUGS AFFECTING FOETUS [None]
